FAERS Safety Report 22039742 (Version 1)
Quarter: 2023Q1

REPORT INFORMATION
  Report Type: Spontaneous
  Country: BG (occurrence: BG)
  Receive Date: 20230227
  Receipt Date: 20230227
  Transmission Date: 20230418
  Serious: Yes (Other)
  Sender: FDA-Public Use
  Company Number: None

PATIENT
  Age: 32 Year
  Sex: Male
  Weight: 75 kg

DRUGS (7)
  1. ALPRAZOLAM [Suspect]
     Active Substance: ALPRAZOLAM
     Indication: Panic attack
     Dosage: UNK
     Route: 048
  2. ALPRAZOLAM [Suspect]
     Active Substance: ALPRAZOLAM
     Indication: Insomnia
  3. ALPRAZOLAM [Suspect]
     Active Substance: ALPRAZOLAM
     Indication: Nervousness
  4. ALPRAZOLAM [Suspect]
     Active Substance: ALPRAZOLAM
     Indication: Anxiety
  5. NEBIVOLOL [Concomitant]
     Active Substance: NEBIVOLOL
     Indication: Hypertension
     Dosage: UNK
     Route: 048
  6. Zornichka [Concomitant]
     Indication: Hypertension
     Dosage: UNK
     Route: 048
  7. Neurobex [Concomitant]
     Dosage: UNK
     Route: 048

REACTIONS (10)
  - Somnambulism [Unknown]
  - Coordination abnormal [Unknown]
  - Dizziness [Unknown]
  - Hallucination [Unknown]
  - Anxiety [Unknown]
  - Aggression [Unknown]
  - Irritability [Unknown]
  - Dysarthria [Unknown]
  - Headache [Unknown]
  - Nausea [Unknown]
